FAERS Safety Report 4760725-5 (Version None)
Quarter: 2005Q3

REPORT INFORMATION
  Report Type: 
  Country: None (occurrence: None)
  Receive Date: 20050902
  Receipt Date: 20050825
  Transmission Date: 20060218
  Serious: Yes (Other)
  Sender: FDA-Public Use
  Company Number: 200516349US

PATIENT
  Sex: Female

DRUGS (3)
  1. ARAVA [Suspect]
     Indication: RHEUMATOID ARTHRITIS
     Dosage: DOSE: UNK
  2. REMICADE [Concomitant]
     Dosage: DOSE: UNK
  3. VERELAN [Concomitant]

REACTIONS (3)
  - PAPILLOEDEMA [None]
  - RETINAL HAEMORRHAGE [None]
  - VISION BLURRED [None]
